FAERS Safety Report 7037174-2 (Version None)
Quarter: 2010Q4

REPORT INFORMATION
  Report Type: 
  Country: None (occurrence: None)
  Receive Date: 20101011
  Receipt Date: 20100929
  Transmission Date: 20110411
  Serious: Yes (Hospitalization, Other)
  Sender: FDA-Public Use
  Company Number: US-ROCHE-644039

PATIENT
  Sex: Male
  Weight: 72.6 kg

DRUGS (3)
  1. ACCUTANE [Suspect]
     Indication: ACNE
     Route: 065
     Dates: start: 20050815
  2. ACCUTANE [Suspect]
     Route: 065
     Dates: start: 20051017
  3. ACCUTANE [Suspect]
     Route: 065
     Dates: start: 20060206, end: 20060301

REACTIONS (13)
  - BIPOLAR DISORDER [None]
  - BLOOD TRIGLYCERIDES INCREASED [None]
  - CHAPPED LIPS [None]
  - COLITIS ULCERATIVE [None]
  - DEPRESSION [None]
  - DRY SKIN [None]
  - GASTROINTESTINAL OBSTRUCTION [None]
  - HALLUCINATION [None]
  - HOMICIDAL IDEATION [None]
  - INFLAMMATORY BOWEL DISEASE [None]
  - OESOPHAGEAL DISORDER [None]
  - PSYCHOTIC DISORDER [None]
  - SUICIDE ATTEMPT [None]
